FAERS Safety Report 17537526 (Version 1)
Quarter: 2020Q1

REPORT INFORMATION
  Report Type: Spontaneous
  Country: TW (occurrence: TW)
  Receive Date: 20200313
  Receipt Date: 20200313
  Transmission Date: 20200409
  Serious: Yes (Other)
  Sender: FDA-Public Use
  Company Number: TW-ABBVIE-20K-153-3318161-00

PATIENT

DRUGS (2)
  1. IMBRUVICA [Suspect]
     Active Substance: IBRUTINIB
     Indication: CHRONIC LYMPHOCYTIC LEUKAEMIA
     Route: 048
  2. IMBRUVICA [Suspect]
     Active Substance: IBRUTINIB
     Dosage: REDUCED DOSE
     Route: 048

REACTIONS (4)
  - Fatigue [Recovering/Resolving]
  - Altered state of consciousness [Recovering/Resolving]
  - Chronic lymphocytic leukaemia [Unknown]
  - Fall [Unknown]
